FAERS Safety Report 6359239-0 (Version None)
Quarter: 2009Q3

REPORT INFORMATION
  Report Type: 
  Country: None (occurrence: None)
  Receive Date: 20090917
  Receipt Date: 20090914
  Transmission Date: 20100115
  Serious: Yes (Death, Hospitalization)
  Sender: FDA-Public Use
  Company Number: PHHY2009GB39236

PATIENT
  Age: 66 Year
  Sex: Female

DRUGS (2)
  1. CLOZAPINE [Suspect]
     Dosage: UNK
     Dates: start: 20090601, end: 20090803
  2. ZAPONEX [Suspect]
     Dosage: 200 MG, UNK
     Route: 048
     Dates: start: 20090803

REACTIONS (1)
  - GENERAL PHYSICAL CONDITION ABNORMAL [None]
